FAERS Safety Report 7552923-2 (Version None)
Quarter: 2011Q2

REPORT INFORMATION
  Report Type: 
  Country: None (occurrence: None)
  Receive Date: 20110616
  Receipt Date: 20100811
  Transmission Date: 20111010
  Serious: No
  Sender: FDA-Public Use
  Company Number: US-ASTRAZENECA-2010SE37697

PATIENT
  Age: 80 Year
  Sex: Female
  Weight: 80.7 kg

DRUGS (4)
  1. ZOCOR [Concomitant]
     Indication: BLOOD CHOLESTEROL ABNORMAL
  2. LEVOTHYROXINE SODIUM [Concomitant]
     Indication: THYROID DISORDER
  3. FASLODEX [Suspect]
     Route: 030
     Dates: start: 20100201
  4. CHEMO [Concomitant]

REACTIONS (2)
  - RASH [None]
  - SKIN WARM [None]
